FAERS Safety Report 4910767-1 (Version None)
Quarter: 2006Q1

REPORT INFORMATION
  Report Type: 
  Country: None (occurrence: None)
  Receive Date: 20060214
  Receipt Date: 20060203
  Transmission Date: 20060701
  Serious: Yes (Hospitalization)
  Sender: FDA-Public Use
  Company Number: US-JNJFOC-20060201424

PATIENT
  Sex: Female
  Weight: 48.08 kg

DRUGS (2)
  1. DURAGESIC-100 [Suspect]
     Route: 062
  2. ANTI-INFLAMMATORY [Concomitant]

REACTIONS (1)
  - GASTRIC HAEMORRHAGE [None]
